FAERS Safety Report 15736381 (Version 1)
Quarter: 2018Q4

REPORT INFORMATION
  Report Type: Spontaneous
  Country: ES (occurrence: ES)
  Receive Date: 20181218
  Receipt Date: 20181218
  Transmission Date: 20190205
  Serious: Yes (Other)
  Sender: FDA-Public Use
  Company Number: ES-ELI_LILLY_AND_COMPANY-ES201812006619

PATIENT
  Age: 43 Year
  Sex: Female
  Weight: 55 kg

DRUGS (4)
  1. PROSPANTUS [Suspect]
     Active Substance: HEDERA HELIX FLOWERING TWIG
     Dosage: 2.5 ML, DAILY
     Route: 048
     Dates: start: 20181201
  2. PROSPANTUS [Suspect]
     Active Substance: HEDERA HELIX FLOWERING TWIG
     Dosage: 2.5 ML, BID
     Route: 048
     Dates: start: 20181201
  3. PROSPANTUS [Suspect]
     Active Substance: HEDERA HELIX FLOWERING TWIG
     Indication: BRONCHITIS
     Dosage: 5 ML, TID
     Route: 048
     Dates: start: 20181201
  4. PROZAC [Suspect]
     Active Substance: FLUOXETINE HYDROCHLORIDE
     Indication: DEPRESSION
     Dosage: 1 DF, EACH MORNING
     Route: 048
     Dates: start: 20170801

REACTIONS (3)
  - Psychotic disorder [Recovering/Resolving]
  - Abdominal pain [Recovering/Resolving]
  - Depression [Recovering/Resolving]

NARRATIVE: CASE EVENT DATE: 20181206
